FAERS Safety Report 7577731-8 (Version None)
Quarter: 2011Q2

REPORT INFORMATION
  Report Type: 
  Country: None (occurrence: None)
  Receive Date: 20110628
  Receipt Date: 20110621
  Transmission Date: 20111010
  Serious: Yes (Congenital Anomaly, Other)
  Sender: FDA-Public Use
  Company Number: US-PFIZER INC-2011138470

PATIENT
  Sex: Male

DRUGS (3)
  1. PAXIL [Suspect]
     Indication: ANXIETY
     Dosage: UNK
     Route: 064
     Dates: start: 20070201, end: 20071001
  2. VISTARIL [Suspect]
     Indication: ANXIETY
     Dosage: UNK
     Route: 064
     Dates: start: 20070201
  3. ZOLOFT [Suspect]
     Dosage: UNK
     Route: 064

REACTIONS (6)
  - CONGENITAL ANOMALY [None]
  - HEART DISEASE CONGENITAL [None]
  - PULMONARY MALFORMATION [None]
  - MATERNAL DRUGS AFFECTING FOETUS [None]
  - KIDNEY MALFORMATION [None]
  - DRUG EXPOSURE DURING PREGNANCY [None]
